FAERS Safety Report 7097591-1 (Version None)
Quarter: 2010Q4

REPORT INFORMATION
  Report Type: 
  Country: None (occurrence: None)
  Receive Date: 20101112
  Receipt Date: 20101101
  Transmission Date: 20110411
  Serious: Yes (Hospitalization)
  Sender: FDA-Public Use
  Company Number: DE-AMGEN-DEUCT2010002865

PATIENT

DRUGS (8)
  1. ENBREL [Suspect]
     Indication: RHEUMATOID ARTHRITIS
     Dosage: 50 MG, QWK
     Route: 058
     Dates: start: 20081101
  2. ENBREL [Suspect]
     Indication: PRODUCT USED FOR UNKNOWN INDICATION
  3. FOLINIC ACID [Concomitant]
     Dosage: UNKNOWN
  4. ACETYLSALICYLIC ACID [Concomitant]
     Dosage: 100 MG (FREQUENCY UNKNOWN)
  5. CALCIUM [Concomitant]
     Dosage: UNKNOWN
  6. FOSAVANCE [Concomitant]
     Dosage: UNKNOWN
  7. METHOTREXATE [Concomitant]
     Dosage: 10 MG (FREQUENCY UNKNOWN)
  8. PREDNISOLONE [Concomitant]
     Dosage: 5 MG (FREQUENCY UNKNOWN)

REACTIONS (1)
  - MYOCARDIAL INFARCTION [None]
